FAERS Safety Report 4933887-4 (Version None)
Quarter: 2006Q1

REPORT INFORMATION
  Report Type: 
  Country: None (occurrence: None)
  Receive Date: 20060307
  Receipt Date: 20060228
  Transmission Date: 20060701
  Serious: Yes (Hospitalization)
  Sender: FDA-Public Use
  Company Number: GR-JNJFOC-20060300119

PATIENT
  Age: 75 Year
  Sex: Male
  Weight: 75 kg

DRUGS (5)
  1. REMICADE [Suspect]
     Indication: ANKYLOSING SPONDYLITIS
     Dosage: 2 INFUSIONS
     Route: 042
  2. RIFINAH [Concomitant]
     Route: 048
  3. RIFINAH [Concomitant]
     Route: 048
  4. EFFEXOR [Concomitant]
     Indication: DEPRESSION
     Route: 048
  5. TREBON SACH [Concomitant]
     Route: 048

REACTIONS (2)
  - CUTANEOUS LUPUS ERYTHEMATOSUS [None]
  - INTERSTITIAL LUNG DISEASE [None]
